FAERS Safety Report 8005653-7 (Version None)
Quarter: 2011Q4

REPORT INFORMATION
  Report Type: 
  Country: None (occurrence: None)
  Receive Date: 20111223
  Receipt Date: 20111212
  Transmission Date: 20120403
  Serious: Yes (Hospitalization)
  Sender: FDA-Public Use
  Company Number: DE-CELGENEUS-062-50794-11121463

PATIENT
  Age: 72 Year
  Sex: Female
  Weight: 55 kg

DRUGS (9)
  1. LEVOFLOXACIN [Concomitant]
     Route: 048
  2. GRANISETRON [Concomitant]
     Route: 048
  3. VIDAZA [Suspect]
     Dosage: 130 MILLIGRAM
     Route: 058
     Dates: start: 20111017, end: 20111128
  4. DEFERASIROX [Concomitant]
     Route: 048
  5. LEVOTHYROXINE SODIUM [Concomitant]
     Route: 048
  6. PANTOPRAZOLE [Concomitant]
     Route: 048
  7. MOUTH RINSE [Concomitant]
     Route: 048
  8. NOVAMINSULFON [Concomitant]
     Route: 065
  9. DIFLUCAN [Concomitant]
     Route: 048

REACTIONS (7)
  - OESOPHAGITIS [None]
  - STOMATITIS [None]
  - CACHEXIA [None]
  - DYSPHAGIA [None]
  - MUCOSAL INFLAMMATION [None]
  - DEHYDRATION [None]
  - AGRANULOCYTOSIS [None]
